FAERS Safety Report 5226072-2 (Version None)
Quarter: 2007Q1

REPORT INFORMATION
  Report Type: 
  Country: None (occurrence: None)
  Receive Date: 20070129
  Receipt Date: 20070115
  Transmission Date: 20070707
  Serious: Yes (Other)
  Sender: FDA-Public Use
  Company Number: 20070014 /

PATIENT
  Age: 33 Year
  Sex: Female

DRUGS (1)
  1. VENOFER [Suspect]
     Indication: HAEMORRHAGIC ANAEMIA
     Dosage: 200MG IV (100MG/DAY)
     Dates: start: 20061215, end: 20061216

REACTIONS (1)
  - PLATELET COUNT INCREASED [None]
